FAERS Safety Report 23531251 (Version 3)
Quarter: 2024Q3

REPORT INFORMATION
  Report Type: Spontaneous
  Country: JP (occurrence: JP)
  Receive Date: 20240216
  Receipt Date: 20240919
  Transmission Date: 20241016
  Serious: No
  Sender: PFIZER
  Company Number: JP-PFIZER INC-PV202400014335

PATIENT

DRUGS (1)
  1. NGENLA [Suspect]
     Active Substance: SOMATROGON-GHLA
     Dosage: 14 MG, WEEKLY
     Route: 058

REACTIONS (3)
  - Device use error [Unknown]
  - Injury associated with device [Unknown]
  - Injection site pain [Unknown]
